FAERS Safety Report 8178747-3 (Version None)
Quarter: 2012Q1

REPORT INFORMATION
  Report Type: 
  Country: None (occurrence: None)
  Receive Date: 20120301
  Receipt Date: 20120301
  Transmission Date: 20120608
  Serious: Yes (Disabling)
  Sender: FDA-Public Use
  Company Number: None

PATIENT
  Age: 58 Year
  Sex: Male
  Weight: 108.4 kg

DRUGS (2)
  1. LIPITOR [Suspect]
     Indication: BLOOD CHOLESTEROL INCREASED
  2. SIMVASTATIN [Concomitant]

REACTIONS (8)
  - SLEEP APNOEA SYNDROME [None]
  - SPEECH DISORDER [None]
  - READING DISORDER [None]
  - DEMENTIA [None]
  - COGNITIVE DISORDER [None]
  - AMNESIA [None]
  - CONFUSIONAL STATE [None]
  - DYSGRAPHIA [None]
